FAERS Safety Report 17958224 (Version 1)
Quarter: 2020Q3

REPORT INFORMATION
  Report Type: Spontaneous
  Country: RU (occurrence: RU)
  Receive Date: 20200629
  Receipt Date: 20200629
  Transmission Date: 20201105
  Serious: Yes (Other)
  Sender: FDA-Public Use
  Company Number: RU-SA-2020SA165170

PATIENT

DRUGS (7)
  1. MAGNESIUM OROTATE. [Suspect]
     Active Substance: MAGNESIUM OROTATE
     Dosage: 3 G, QD (500 MG 6 TABLET PER DAY)
     Route: 064
  2. METHYLDOPA. [Suspect]
     Active Substance: METHYLDOPA
     Dosage: 250 MG, Q6D
     Route: 064
  3. FOLIC ACID. [Suspect]
     Active Substance: FOLIC ACID
     Dosage: 400 UG
     Route: 064
  4. CLEXANE [Suspect]
     Active Substance: ENOXAPARIN SODIUM
     Dosage: 0.4 UNK, QD
     Route: 064
  5. CLEXANE [Suspect]
     Active Substance: ENOXAPARIN SODIUM
     Dosage: 0.4 UNK
     Route: 063
  6. POTASSIUM IODIDE. [Suspect]
     Active Substance: POTASSIUM IODIDE
     Dosage: 200 UG
     Route: 064
  7. POLYGYNAX [ACETARSOL;NEOMYCIN SULFATE;NYSTATIN;POLYMYXIN B SULFATE] [Suspect]
     Active Substance: ACETARSOL\NEOMYCIN\NYSTATIN\POLYMYXIN B SULFATE
     Dosage: 1 DF, HS
     Route: 064

REACTIONS (4)
  - Foetal growth restriction [Unknown]
  - Premature baby [Unknown]
  - Exposure via breast milk [Unknown]
  - Foetal exposure during pregnancy [Unknown]
